FAERS Safety Report 14078283 (Version 1)
Quarter: 2017Q4

REPORT INFORMATION
  Report Type: Spontaneous
  Country: GB (occurrence: GB)
  Receive Date: 20171012
  Receipt Date: 20171012
  Transmission Date: 20180321
  Serious: Yes (Hospitalization)
  Sender: FDA-Public Use
  Company Number: GB-UCBSA-2017040165

PATIENT
  Age: 63 Year
  Sex: Female
  Weight: 59 kg

DRUGS (12)
  1. ATORVASTATIN [Interacting]
     Active Substance: ATORVASTATIN
     Dosage: 80 MG, ONCE DAILY (QD)
     Route: 048
     Dates: start: 20170721, end: 20170919
  2. VALPROATE [Concomitant]
     Active Substance: VALPROIC ACID
     Indication: PRODUCT USED FOR UNKNOWN INDICATION
     Dosage: UNK
  3. ALENDRONATE SODIUM. [Concomitant]
     Active Substance: ALENDRONATE SODIUM
     Indication: PRODUCT USED FOR UNKNOWN INDICATION
     Dosage: UNK
  4. ASPIRIN. [Concomitant]
     Active Substance: ASPIRIN
     Indication: PRODUCT USED FOR UNKNOWN INDICATION
     Dosage: UNK
  5. LEVETIRACETAM. [Suspect]
     Active Substance: LEVETIRACETAM
     Indication: POST STROKE EPILEPSY
     Dosage: 500 MG, 2X/DAY (BID)
     Route: 048
     Dates: start: 20160811, end: 20170130
  6. ATORVASTATIN [Interacting]
     Active Substance: ATORVASTATIN
     Indication: CEREBROVASCULAR ACCIDENT
     Dosage: 80 MG, UNK
     Route: 048
     Dates: start: 20160713, end: 20160922
  7. LEVETIRACETAM. [Interacting]
     Active Substance: LEVETIRACETAM
     Dosage: 500 MG, 2X/DAY (BID)
     Route: 048
     Dates: start: 20170721, end: 201708
  8. CLOPIDOGREL [Concomitant]
     Active Substance: CLOPIDOGREL BISULFATE
     Indication: PRODUCT USED FOR UNKNOWN INDICATION
     Dosage: UNK
  9. LACTULOSE. [Concomitant]
     Active Substance: LACTULOSE
     Indication: PRODUCT USED FOR UNKNOWN INDICATION
     Dosage: UNK
  10. METHYLPREDNISOLONE. [Concomitant]
     Active Substance: METHYLPREDNISOLONE
     Indication: PRODUCT USED FOR UNKNOWN INDICATION
  11. PREDNISOLONE. [Concomitant]
     Active Substance: PREDNISOLONE
     Indication: PRODUCT USED FOR UNKNOWN INDICATION
  12. ATORVASTATIN [Interacting]
     Active Substance: ATORVASTATIN
     Dosage: 80 MG, UNK
     Route: 048
     Dates: start: 201701, end: 20170130

REACTIONS (3)
  - Drug-induced liver injury [Recovering/Resolving]
  - Drug interaction [Unknown]
  - Liver function test abnormal [Recovered/Resolved]

NARRATIVE: CASE EVENT DATE: 20160922
